FAERS Safety Report 20059343 (Version 1)
Quarter: 2021Q4

REPORT INFORMATION
  Report Type: Report from Study
  Country: US (occurrence: US)
  Receive Date: 20211111
  Receipt Date: 20211111
  Transmission Date: 20220303
  Serious: Yes (Hospitalization)
  Sender: FDA-Public Use
  Company Number: US-SERVIER-S21012201

PATIENT

DRUGS (7)
  1. PEGASPARGASE [Suspect]
     Active Substance: PEGASPARGASE
     Indication: Acute lymphocytic leukaemia
     Dosage: 3750 IU, ON D15 AND D43
     Route: 042
     Dates: start: 20210819, end: 20210920
  2. CYTARABINE [Suspect]
     Active Substance: CYTARABINE
     Indication: Acute lymphocytic leukaemia
     Dosage: 75 MG/M?, ON DAYS 1-4 AND 8-11, 29-32, 36-39
     Route: 042
     Dates: start: 20210805
  3. CYCLOPHOSPHAMIDE [Suspect]
     Active Substance: CYCLOPHOSPHAMIDE
     Indication: Acute lymphocytic leukaemia
     Dosage: 1000 MG/M?, ON D1 AND D29
     Route: 042
     Dates: start: 20210805
  4. MERCAPTOPURINE [Suspect]
     Active Substance: MERCAPTOPURINE
     Indication: Acute lymphocytic leukaemia
     Dosage: 60 MG/M?, ON DAYS 1-14 AND 29-42
     Route: 048
     Dates: start: 20210805
  5. RITUXIMAB [Suspect]
     Active Substance: RITUXIMAB
     Indication: Acute lymphocytic leukaemia
     Dosage: 375 MG/M?, ON DAYS 1, 8, 29 AND 36
     Route: 042
     Dates: start: 20210805
  6. VINCRISTINE SULFATE [Suspect]
     Active Substance: VINCRISTINE SULFATE
     Indication: Acute lymphocytic leukaemia
     Dosage: 1.5 MG/M?, WEEKLY, ON DAYS 1, 8, 15, AND 22
     Route: 042
     Dates: start: 20210805
  7. TN UNSPECIFIED [Concomitant]
     Indication: Acute lymphocytic leukaemia
     Dosage: 15 MG, WEEKLY, ON DAYS 1, 8, 15, AND 22
     Route: 037
     Dates: start: 20210805

REACTIONS (2)
  - Febrile neutropenia [Recovering/Resolving]
  - Sepsis [Recovering/Resolving]

NARRATIVE: CASE EVENT DATE: 20210107
